FAERS Safety Report 14709725 (Version 2)
Quarter: 2018Q2

REPORT INFORMATION
  Report Type: Spontaneous
  Country: FR (occurrence: FR)
  Receive Date: 20180403
  Receipt Date: 20180412
  Transmission Date: 20180711
  Serious: Yes (Other)
  Sender: FDA-Public Use
  Company Number: FR-MERCK KGAA-2045010

PATIENT
  Age: 64 Year
  Sex: Female

DRUGS (10)
  1. COZAAR [Concomitant]
     Active Substance: LOSARTAN POTASSIUM
     Dates: start: 20161220
  2. NOCTAMIDE [Concomitant]
     Active Substance: LORMETAZEPAM
     Dates: start: 20161220
  3. HYZAAR [Concomitant]
     Active Substance: HYDROCHLOROTHIAZIDE\LOSARTAN POTASSIUM
     Dates: start: 20170510
  4. TRIMEBUTINE [Concomitant]
     Active Substance: TRIMEBUTINE
     Dates: start: 20161220
  5. XYZALL [Concomitant]
     Active Substance: LEVOCETIRIZINE DIHYDROCHLORIDE
     Dates: start: 20161220
  6. NOVOTHYROX [Suspect]
     Active Substance: LEVOTHYROXINE SODIUM
     Indication: PRODUCT USED FOR UNKNOWN INDICATION
     Dates: start: 2017
  7. EFFEXOR [Concomitant]
     Active Substance: VENLAFAXINE HYDROCHLORIDE
     Dates: start: 20161220
  8. ZINC GLUCONATE [Concomitant]
     Active Substance: ZINC GLUCONATE
  9. PLAVIX [Concomitant]
     Active Substance: CLOPIDOGREL BISULFATE
     Dates: start: 20161220
  10. XANAX [Concomitant]
     Active Substance: ALPRAZOLAM
     Dates: start: 20161220

REACTIONS (22)
  - Muscle spasms [None]
  - Gait disturbance [None]
  - Emotional distress [None]
  - Dysplastic naevus [None]
  - Malaise [None]
  - Pain in extremity [None]
  - Blood creatinine decreased [None]
  - Constipation [None]
  - Hypertension [None]
  - Loss of personal independence in daily activities [None]
  - Chest discomfort [Recovered/Resolved]
  - Insomnia [None]
  - Confusional state [Recovered/Resolved]
  - Tremor [Recovered/Resolved]
  - Arterial disorder [None]
  - Decreased appetite [None]
  - Tri-iodothyronine decreased [None]
  - Headache [Recovered/Resolved]
  - Fatigue [None]
  - Memory impairment [None]
  - Irritability [Recovered/Resolved]
  - Social avoidant behaviour [None]

NARRATIVE: CASE EVENT DATE: 2017
